FAERS Safety Report 13999442 (Version 1)
Quarter: 2017Q3

REPORT INFORMATION
  Report Type: Report from Study
  Country: CA (occurrence: CA)
  Receive Date: 20170922
  Receipt Date: 20170922
  Transmission Date: 20171128
  Serious: Yes (Other)
  Sender: FDA-Public Use
  Company Number: CA-TEVA-808725ACC

PATIENT
  Sex: Female
  Weight: 78 kg

DRUGS (28)
  1. ONE ALPHA [Concomitant]
     Active Substance: ALFACALCIDOL
     Dosage: UNKNOWN STOP DATE
     Dates: start: 20151117
  2. JINARC [Suspect]
     Active Substance: TOLVAPTAN
     Dosage: 60 MILLIGRAM DAILY; EVERY DAY (QD, IN MORNING)
     Route: 048
     Dates: start: 20151219, end: 20160225
  3. CRESTOR [Concomitant]
     Active Substance: ROSUVASTATIN CALCIUM
     Dosage: UNKNOWN STOP DATE
     Dates: start: 20141211
  4. ONE ALPHA [Concomitant]
     Active Substance: ALFACALCIDOL
     Dosage: UNKNOWN STOP DATE
     Dates: start: 20150721
  5. JINARC [Suspect]
     Active Substance: TOLVAPTAN
     Dosage: 15 MILLIGRAM DAILY; EVERY DAY (QD, IN EVENING)
     Route: 048
     Dates: start: 20150808, end: 20151218
  6. JINARC [Suspect]
     Active Substance: TOLVAPTAN
     Dosage: 30 MILLIGRAM DAILY; EVERY DAY (QD, IN EVENING)
     Route: 048
     Dates: start: 20151219
  7. JINARC [Suspect]
     Active Substance: TOLVAPTAN
     Dosage: 15 MILLIGRAM DAILY; EVERY DAY (QD, IN EVENING); LOT 5A85TE3H98TC315; EXPIRY DEC-2016
     Route: 065
     Dates: start: 20150721, end: 20151117
  8. VASOTEC [Concomitant]
     Active Substance: ENALAPRIL MALEATE
     Dosage: UNKNOWN STOP DATE
     Dates: start: 20141215
  9. VASOTEC [Concomitant]
     Active Substance: ENALAPRIL MALEATE
     Dosage: UNKNOWN STOP DATE
     Dates: start: 20151117
  10. CRESTOR [Concomitant]
     Active Substance: ROSUVASTATIN CALCIUM
     Dosage: UNKNOWN STOP DATE
     Dates: start: 20141215
  11. CRESTOR [Concomitant]
     Active Substance: ROSUVASTATIN CALCIUM
     Dosage: UNKNOWN STOP DATE
     Dates: start: 20150721
  12. CRESTOR [Concomitant]
     Active Substance: ROSUVASTATIN CALCIUM
     Dosage: UNKNOWN STOP DATE
     Dates: start: 20151117
  13. VITAMIN D [Concomitant]
     Active Substance: CHOLECALCIFEROL
  14. JINARC [Suspect]
     Active Substance: TOLVAPTAN
     Dosage: 15 MILLIGRAM DAILY; EVERY DAY (QD, IN EVENING); LOT 6A85ASC1; EXPIRY DATE: FEB-2019
     Route: 048
  15. CRESTOR [Concomitant]
     Active Substance: ROSUVASTATIN CALCIUM
     Dosage: UNKNOWN STOP DATE
     Dates: start: 20160517
  16. VASOTEC [Concomitant]
     Active Substance: ENALAPRIL MALEATE
     Dosage: UNKNOWN STOP DATE
     Dates: start: 20160517
  17. CRESTOR [Concomitant]
     Active Substance: ROSUVASTATIN CALCIUM
     Dosage: UNKNOWN STOP DATE
     Dates: start: 20150416
  18. ONE ALPHA [Concomitant]
     Active Substance: ALFACALCIDOL
     Dosage: UNKNOWN STOP DATE
     Dates: start: 20160517
  19. JINARC [Suspect]
     Active Substance: TOLVAPTAN
     Indication: CONGENITAL CYSTIC KIDNEY DISEASE
     Dosage: 45 MILLIGRAM DAILY; EVERY DAY (QD) IN MORNING.
     Route: 048
     Dates: start: 20150808, end: 20151218
  20. JINARC [Suspect]
     Active Substance: TOLVAPTAN
     Dosage: 45 MILLIGRAM DAILY; EVERY DAY (QD, IN MORNING); LOT 5A85TE3H98TC315; EXPIRY DEC-2016
     Route: 065
     Dates: start: 20150721, end: 20151117
  21. JINARC [Suspect]
     Active Substance: TOLVAPTAN
     Dosage: 45 MILLIGRAM DAILY; EVERY DAY (QD, IN MORNING), STOP DATE: ONGOING
     Route: 048
     Dates: start: 20160226
  22. JINARC [Suspect]
     Active Substance: TOLVAPTAN
     Dosage: 15 MILLIGRAM DAILY; EVERY DAY (QD, IN EVENING); STOP DATE ONGOING
     Route: 048
     Dates: start: 20160226
  23. VASOTEC [Concomitant]
     Active Substance: ENALAPRIL MALEATE
     Dosage: UNKNOWN STOP DATE
     Dates: start: 20141211
  24. ONE ALPHA [Concomitant]
     Active Substance: ALFACALCIDOL
     Dosage: UNKNOWN STOP DATE
     Dates: start: 20150416
  25. CLONIDINE. [Suspect]
     Active Substance: CLONIDINE
     Indication: BLOOD PRESSURE ABNORMAL
     Dosage: .075  DAILY;
     Route: 062
  26. JINARC [Suspect]
     Active Substance: TOLVAPTAN
     Dosage: 45 MILLIGRAM DAILY; EVERY DAY (QD IN MORNING); LOT 6A85ASC1; EXPIRARY DATE: FEB-2019
     Route: 048
  27. VASOTEC [Concomitant]
     Active Substance: ENALAPRIL MALEATE
     Dosage: UNKNOWN STOP DATE
     Dates: start: 20150721
  28. ONE ALPHA [Concomitant]
     Active Substance: ALFACALCIDOL
     Dosage: UNKNOWN STOP DATE
     Dates: start: 20141215

REACTIONS (16)
  - Vomiting [Unknown]
  - Syncope [Unknown]
  - Somnolence [Unknown]
  - Disorientation [Recovered/Resolved]
  - Emotional disorder [Unknown]
  - Feeling abnormal [Unknown]
  - Dehydration [Recovered/Resolved]
  - Nocturia [Unknown]
  - Renal impairment [Unknown]
  - Retching [Unknown]
  - Musculoskeletal discomfort [Unknown]
  - Pollakiuria [Unknown]
  - Hypertension [Unknown]
  - Hot flush [Unknown]
  - Abdominal pain [Unknown]
  - Gastrooesophageal reflux disease [Unknown]
